FAERS Safety Report 8247096-7 (Version None)
Quarter: 2012Q1

REPORT INFORMATION
  Report Type: 
  Country: None (occurrence: None)
  Receive Date: 20120329
  Receipt Date: 20120329
  Transmission Date: 20120608
  Serious: Yes (Hospitalization)
  Sender: FDA-Public Use
  Company Number: None

PATIENT
  Age: 80 Year
  Sex: Male
  Weight: 71.2 kg

DRUGS (8)
  1. WARFARIN SODIUM [Suspect]
     Indication: ATRIAL FIBRILLATION
     Dosage: 4 MG/.5 MG EOP/EOD PO/PO CHRONIC
     Route: 048
  2. DILANTIN [Concomitant]
  3. CALCIUM CARBONATE [Concomitant]
  4. M.V.I. [Concomitant]
  5. BENAZEPRIL HYDROCHLORIDE [Concomitant]
  6. METOPROLOL SUCCINATE [Concomitant]
  7. ASPIRIN [Suspect]
     Indication: AORTIC VALVE REPLACEMENT
     Dosage: 81 MG DAILY PO CHRONIC
     Route: 048
  8. ASPIRIN [Suspect]
     Indication: MITRAL VALVE REPLACEMENT
     Dosage: 81 MG DAILY PO CHRONIC
     Route: 048

REACTIONS (4)
  - HAEMATOMA [None]
  - HAEMORRHAGE [None]
  - FALL [None]
  - SUBDURAL HAEMATOMA [None]
